FAERS Safety Report 13808575 (Version 3)
Quarter: 2018Q1

REPORT INFORMATION
  Report Type: Report from Study
  Country: US (occurrence: US)
  Receive Date: 20170728
  Receipt Date: 20180118
  Transmission Date: 20180508
  Serious: No
  Sender: FDA-Public Use
  Company Number: US-AMGEN-USASL2017069635

PATIENT
  Age: 50 Year
  Sex: Female

DRUGS (1)
  1. REPATHA [Suspect]
     Active Substance: EVOLOCUMAB
     Indication: HYPERCHOLESTEROLAEMIA
     Dosage: 140 MG, Q2WK
     Route: 065
     Dates: start: 201704

REACTIONS (4)
  - Oropharyngeal pain [Recovered/Resolved]
  - Back pain [Not Recovered/Not Resolved]
  - Inappropriate schedule of drug administration [Unknown]
  - Nasal congestion [Recovered/Resolved]

NARRATIVE: CASE EVENT DATE: 2017
